FAERS Safety Report 6518958-3 (Version None)
Quarter: 2009Q4

REPORT INFORMATION
  Report Type: 
  Country: None (occurrence: None)
  Receive Date: 20091228
  Receipt Date: 20091216
  Transmission Date: 20100525
  Serious: Yes (Other)
  Sender: FDA-Public Use
  Company Number: US-SANOFI-AVENTIS-A03200904488

PATIENT
  Age: 67 Year
  Sex: Male

DRUGS (9)
  1. DRONEDARONE [Suspect]
     Indication: VENTRICULAR FIBRILLATION
     Dosage: UNIT DOSE: 400 MG
     Route: 048
     Dates: start: 20090925
  2. AMOXICILLIN [Suspect]
     Route: 065
     Dates: start: 20091215
  3. PLAVIX [Concomitant]
     Indication: STENT PLACEMENT
     Route: 065
  4. TOPROL-XL [Concomitant]
     Route: 065
  5. PEPCID [Concomitant]
     Route: 065
  6. CRESTOR [Concomitant]
     Dosage: UNIT DOSE: 10 MG
     Route: 065
  7. COUMADIN [Concomitant]
     Indication: THROMBOSIS
     Dosage: UNIT DOSE: 5 MG
     Route: 065
  8. LOVENOX [Concomitant]
     Indication: THROMBOSIS
     Route: 065
  9. COENZYME Q10 [Concomitant]
     Route: 065

REACTIONS (5)
  - ANXIETY [None]
  - EXTRASYSTOLES [None]
  - HEART RATE INCREASED [None]
  - OFF LABEL USE [None]
  - VENTRICULAR FIBRILLATION [None]
